FAERS Safety Report 7299108-5 (Version None)
Quarter: 2011Q1

REPORT INFORMATION
  Report Type: 
  Country: None (occurrence: None)
  Receive Date: 20110217
  Receipt Date: 20110203
  Transmission Date: 20110831
  Serious: Yes (Death)
  Sender: FDA-Public Use
  Company Number: US-CELGENEUS-028-21880-11020427

PATIENT
  Sex: Male

DRUGS (16)
  1. ELAVIL [Concomitant]
     Route: 065
  2. SENNOSIDES [Concomitant]
     Route: 065
  3. LYRICA [Concomitant]
     Route: 065
  4. AREDIA [Concomitant]
     Route: 065
  5. OXYCONTIN [Concomitant]
     Route: 065
  6. DECADRON [Concomitant]
     Route: 065
  7. BISOPROLOL [Concomitant]
     Route: 065
  8. LACTULOSE [Concomitant]
     Route: 065
  9. PANTOLOC [Concomitant]
     Route: 065
  10. ACETAMINOPHEN [Concomitant]
     Route: 065
  11. REVLIMID [Suspect]
     Indication: MULTIPLE MYELOMA
     Route: 048
     Dates: start: 20101203, end: 20101216
  12. SUPENDOL [Concomitant]
     Route: 065
  13. FLEXERIL [Concomitant]
     Route: 065
  14. COLACE [Concomitant]
     Route: 065
  15. LOVENOX [Concomitant]
     Route: 065
  16. AMLODIPINE [Concomitant]
     Route: 065

REACTIONS (1)
  - DEATH [None]
